FAERS Safety Report 5854449-0 (Version None)
Quarter: 2008Q3

REPORT INFORMATION
  Report Type: 
  Country: None (occurrence: None)
  Receive Date: 20080822
  Receipt Date: 20080811
  Transmission Date: 20090109
  Serious: Yes (Hospitalization, Other)
  Sender: FDA-Public Use
  Company Number: AR-PFIZER INC-2008054526

PATIENT
  Sex: Female
  Weight: 50 kg

DRUGS (4)
  1. CHANTIX [Suspect]
     Indication: SMOKING CESSATION THERAPY
     Route: 048
     Dates: start: 20080602, end: 20080809
  2. FOXETIN [Concomitant]
     Route: 048
  3. ALPLAX [Concomitant]
     Route: 048
  4. SERETIDE [Concomitant]
     Route: 048

REACTIONS (6)
  - BRONCHITIS [None]
  - DYSPNOEA [None]
  - EMPHYSEMA [None]
  - FATIGUE [None]
  - NASOPHARYNGITIS [None]
  - PYREXIA [None]
